FAERS Safety Report 7997764-7 (Version None)
Quarter: 2011Q4

REPORT INFORMATION
  Report Type: 
  Country: None (occurrence: None)
  Receive Date: 20111221
  Receipt Date: 20111219
  Transmission Date: 20120403
  Serious: Yes (Other)
  Sender: FDA-Public Use
  Company Number: US-AMGEN-USASP2011056333

PATIENT
  Age: 61 Year
  Sex: Female

DRUGS (1)
  1. ENBREL [Suspect]
     Indication: RHEUMATOID ARTHRITIS
     Dosage: 50 MG, QWK
     Dates: start: 20110202

REACTIONS (6)
  - ROTATOR CUFF SYNDROME [None]
  - JOINT SWELLING [None]
  - FALL [None]
  - WEIGHT INCREASED [None]
  - OEDEMA PERIPHERAL [None]
  - MUSCULAR WEAKNESS [None]
